FAERS Safety Report 17300632 (Version 1)
Quarter: 2020Q1

REPORT INFORMATION
  Report Type: Spontaneous
  Country: DE (occurrence: DE)
  Receive Date: 20200122
  Receipt Date: 20200122
  Transmission Date: 20200409
  Serious: Yes (Other)
  Sender: FDA-Public Use
  Company Number: DE-EMD SERONO-E2B_90066778

PATIENT
  Age: 39 Year
  Sex: Female

DRUGS (3)
  1. SYNARELA [Suspect]
     Active Substance: NAFARELIN ACETATE
     Indication: ASSISTED REPRODUCTIVE TECHNOLOGY
  2. OVITRELLE [Suspect]
     Active Substance: CHORIOGONADOTROPIN ALFA
     Indication: ASSISTED REPRODUCTIVE TECHNOLOGY
  3. GONAL-F [Suspect]
     Active Substance: FOLLITROPIN
     Indication: ASSISTED REPRODUCTIVE TECHNOLOGY

REACTIONS (2)
  - Ovarian hyperstimulation syndrome [Recovered/Resolved]
  - Impaired work ability [Unknown]

NARRATIVE: CASE EVENT DATE: 20190227
